FAERS Safety Report 8253480-8 (Version None)
Quarter: 2012Q2

REPORT INFORMATION
  Report Type: 
  Country: None (occurrence: None)
  Receive Date: 20120402
  Receipt Date: 20120302
  Transmission Date: 20120825
  Serious: No
  Sender: FDA-Public Use
  Company Number: US-AMGEN-USASP2012014283

PATIENT
  Age: 42 Year
  Sex: Female

DRUGS (1)
  1. ENBREL [Suspect]
     Indication: RHEUMATOID ARTHRITIS
     Dosage: 50 MG, QWK
     Dates: start: 20111001

REACTIONS (7)
  - SINUSITIS [None]
  - NAUSEA [None]
  - COLD SWEAT [None]
  - TENDONITIS [None]
  - DIZZINESS [None]
  - PAIN IN EXTREMITY [None]
  - JOINT SWELLING [None]
